FAERS Safety Report 17523178 (Version 1)
Quarter: 2020Q1

REPORT INFORMATION
  Report Type: Spontaneous
  Country: ES (occurrence: ES)
  Receive Date: 20200311
  Receipt Date: 20200311
  Transmission Date: 20200409
  Serious: Yes (Hospitalization, Congenital Anomaly, Other)
  Sender: FDA-Public Use
  Company Number: ES-AUROBINDO-AUR-APL-2020-012396

PATIENT
  Sex: Female

DRUGS (3)
  1. VALPROIC ACID AUROVITAS 300MG PROLONGED RELEASE TABLETS [Suspect]
     Active Substance: VALPROIC ACID
     Indication: PRODUCT USED FOR UNKNOWN INDICATION
     Dosage: 300 MILLIGRAM, ONCE A DAY,(300MG/DIA)
     Route: 064
     Dates: start: 2011
  2. EUTIROX [Concomitant]
     Active Substance: LEVOTHYROXINE SODIUM
     Indication: PRODUCT USED FOR UNKNOWN INDICATION
     Dosage: UNK
     Route: 064
  3. YODOCEFOL [Concomitant]
     Active Substance: CYANOCOBALAMIN\FOLIC ACID\POTASSIUM IODIDE
     Indication: PRODUCT USED FOR UNKNOWN INDICATION
     Dosage: 1 DOSAGE FORM
     Route: 064
     Dates: start: 2011

REACTIONS (5)
  - Exposure during pregnancy [Recovered/Resolved with Sequelae]
  - Renal dysplasia [Recovered/Resolved with Sequelae]
  - Foetal anticonvulsant syndrome [Recovered/Resolved with Sequelae]
  - High arched palate [Recovered/Resolved with Sequelae]
  - Microstomia [Recovered/Resolved with Sequelae]

NARRATIVE: CASE EVENT DATE: 2011
